FAERS Safety Report 15704200 (Version 1)
Quarter: 2018Q4

REPORT INFORMATION
  Report Type: Spontaneous
  Country: CO (occurrence: CO)
  Receive Date: 20181210
  Receipt Date: 20181210
  Transmission Date: 20190205
  Serious: Yes (Hospitalization)
  Sender: FDA-Public Use
  Company Number: CO-BAYER-2018-225491

PATIENT
  Age: 50 Year
  Sex: Female
  Weight: 65 kg

DRUGS (1)
  1. ULTRAVIST? 300 [Suspect]
     Active Substance: IOPROMIDE
     Dosage: 40 ML, ONCE
     Route: 042
     Dates: start: 20181128, end: 20181128

REACTIONS (8)
  - Vomiting [Recovered/Resolved]
  - Erythema [Recovered/Resolved]
  - Feeling abnormal [Recovered/Resolved]
  - Hypersensitivity [Recovered/Resolved]
  - Syncope [Recovered/Resolved]
  - Lip swelling [Recovered/Resolved]
  - Hypotension [Recovered/Resolved]
  - Pulse abnormal [Recovered/Resolved]

NARRATIVE: CASE EVENT DATE: 20181128
